FAERS Safety Report 16665231 (Version 1)
Quarter: 2019Q3

REPORT INFORMATION
  Report Type: Spontaneous
  Country: US (occurrence: US)
  Receive Date: 20190803
  Receipt Date: 20190803
  Transmission Date: 20191004
  Serious: Yes (Other)
  Sender: FDA-Public Use
  Company Number: US-ACCORD-120236

PATIENT
  Age: 46 Year
  Sex: Female

DRUGS (1)
  1. DOCETAXEL ACCORD [Suspect]
     Active Substance: DOCETAXEL
     Indication: BREAST CANCER
     Dosage: NUMBER OF CYCLES: 04?(IV WAS 1 1/2 HOURS) WAS GIVEN NAUSEA MEDICINE 1ST TOOK 45 MIN - 1 HOUR
     Route: 042
     Dates: start: 20110801, end: 20111031

REACTIONS (1)
  - Alopecia [Not Recovered/Not Resolved]

NARRATIVE: CASE EVENT DATE: 201108
